FAERS Safety Report 5450352-9 (Version None)
Quarter: 2007Q3

REPORT INFORMATION
  Report Type: 
  Country: None (occurrence: None)
  Receive Date: 20070912
  Receipt Date: 20070831
  Transmission Date: 20080115
  Serious: Yes (Other)
  Sender: FDA-Public Use
  Company Number: US-PFIZER INC-2007073969

PATIENT
  Sex: Male
  Weight: 94.3 kg

DRUGS (3)
  1. CHANTIX [Suspect]
     Indication: SMOKING CESSATION THERAPY
     Dates: start: 20070822, end: 20070823
  2. ADVAIR DISKUS 100/50 [Concomitant]
     Indication: ASTHMA
  3. PRAVACHOL [Concomitant]
     Indication: BLOOD CHOLESTEROL INCREASED

REACTIONS (3)
  - DISORIENTATION [None]
  - HEADACHE [None]
  - HYPERSOMNIA [None]
